FAERS Safety Report 14974603 (Version 2)
Quarter: 2018Q2

REPORT INFORMATION
  Report Type: Spontaneous
  Country: JP (occurrence: JP)
  Receive Date: 20180605
  Receipt Date: 20180607
  Transmission Date: 20180711
  Serious: Yes (Life-Threatening)
  Sender: FDA-Public Use
  Company Number: JP-ELI_LILLY_AND_COMPANY-JP201805014559AA

PATIENT
  Age: 70 Year
  Sex: Female
  Weight: 42 kg

DRUGS (4)
  1. CYRAMZA [Suspect]
     Active Substance: RAMUCIRUMAB
     Indication: GASTRIC CANCER STAGE IV
     Dosage: 365 MG, SINGLE
     Route: 042
     Dates: start: 20180509, end: 20180509
  2. DEXART [Concomitant]
     Active Substance: DEXAMETHASONE SODIUM PHOSPHATE
     Indication: PROPHYLAXIS OF NAUSEA AND VOMITING
     Dosage: 9.9 MG, SINGLE
     Route: 041
     Dates: start: 20180509, end: 20180509
  3. ZANTAC [Concomitant]
     Active Substance: RANITIDINE HYDROCHLORIDE
     Indication: ALLERGY PROPHYLAXIS
     Dosage: 50 MG, SINGLE
     Route: 041
     Dates: start: 20180509, end: 20180509
  4. RESTAMIN KOWA [Concomitant]
     Indication: ALLERGY PROPHYLAXIS
     Dosage: 50 MG, SINGLE
     Route: 048
     Dates: start: 20180509, end: 20180509

REACTIONS (1)
  - Anaphylactic shock [Recovering/Resolving]

NARRATIVE: CASE EVENT DATE: 20180509
